FAERS Safety Report 8252522-3 (Version None)
Quarter: 2012Q2

REPORT INFORMATION
  Report Type: 
  Country: None (occurrence: None)
  Receive Date: 20120402
  Receipt Date: 20111026
  Transmission Date: 20120825
  Serious: No
  Sender: FDA-Public Use
  Company Number: US-ABBOTT-11P-163-0869300-00

PATIENT
  Age: 60 Year
  Sex: Male

DRUGS (4)
  1. ANDROGEL [Suspect]
     Indication: BLOOD TESTOSTERONE DECREASED
     Dosage: 1 PACKET FOR 30 DAYS
     Dates: start: 20110701, end: 20110801
  2. ANDROGEL [Suspect]
     Dosage: 4 PUMPS
     Dates: start: 20110701
  3. LOZOL [Concomitant]
     Indication: HYPERTENSION
  4. SIMVASTATIN [Concomitant]
     Indication: HYPERLIPIDAEMIA

REACTIONS (1)
  - BLOOD TESTOSTERONE FREE ABNORMAL [None]
